FAERS Safety Report 16474560 (Version 1)
Quarter: 2019Q2

REPORT INFORMATION
  Report Type: Spontaneous
  Country: US (occurrence: US)
  Receive Date: 20190625
  Receipt Date: 20190625
  Transmission Date: 20190711
  Serious: Yes (Death, Hospitalization)
  Sender: FDA-Public Use
  Company Number: US-GALDERMA-US19035960

PATIENT
  Age: 63 Year
  Sex: Female

DRUGS (1)
  1. DOXYCYCLINE. [Suspect]
     Active Substance: DOXYCYCLINE
     Indication: CELLULITIS
     Route: 065

REACTIONS (14)
  - Ventricular tachycardia [Fatal]
  - Skin exfoliation [Unknown]
  - Dry skin [Unknown]
  - Wound [Unknown]
  - Intentional product use issue [Recovered/Resolved]
  - Cardiac arrest [Fatal]
  - Fatigue [Unknown]
  - Pain [Unknown]
  - Erythema [Unknown]
  - Pulse absent [Unknown]
  - Rash [Unknown]
  - Mouth ulceration [Unknown]
  - Hypotension [Unknown]
  - Toxic epidermal necrolysis [Fatal]
